FAERS Safety Report 25229668 (Version 1)
Quarter: 2025Q2

REPORT INFORMATION
  Report Type: Spontaneous
  Country: ES (occurrence: ES)
  Receive Date: 20250423
  Receipt Date: 20250423
  Transmission Date: 20250717
  Serious: Yes (Life-Threatening, Other)
  Sender: AUROBINDO
  Company Number: ES-CINFAGATEW-2025000874

PATIENT
  Age: 77 Year
  Sex: Female

DRUGS (2)
  1. ATENOLOL [Suspect]
     Active Substance: ATENOLOL
     Indication: Computerised tomogram
     Route: 048
     Dates: start: 20250324, end: 20250324
  2. NITROGLYCERIN [Suspect]
     Active Substance: NITROGLYCERIN
     Indication: Computerised tomogram
     Route: 060
     Dates: start: 20250324, end: 20250324

REACTIONS (2)
  - Cardio-respiratory arrest [Recovered/Resolved]
  - Off label use [Recovered/Resolved]

NARRATIVE: CASE EVENT DATE: 20250324
